FAERS Safety Report 10571213 (Version 1)
Quarter: 2014Q4

REPORT INFORMATION
  Report Type: Spontaneous
  Country: AT (occurrence: AT)
  Receive Date: 20141107
  Receipt Date: 20141107
  Transmission Date: 20150529
  Serious: Yes (Other)
  Sender: FDA-Public Use
  Company Number: AT-BRISTOL-MYERS SQUIBB COMPANY-21558275

PATIENT
  Age: 47 Year
  Sex: Female

DRUGS (1)
  1. LITALIR [Suspect]
     Active Substance: HYDROXYUREA
     Dates: end: 200610

REACTIONS (5)
  - Splenomegaly [Unknown]
  - Leukocytosis [Unknown]
  - Blast cell count increased [Unknown]
  - Philadelphia chromosome positive [Unknown]
  - Off label use [Unknown]

NARRATIVE: CASE EVENT DATE: 200610
